FAERS Safety Report 8880699 (Version 2)
Quarter: 2012Q4

REPORT INFORMATION
  Report Type: 
  Country: US (occurrence: US)
  Receive Date: 20121101
  Receipt Date: 20121109
  Transmission Date: 20130627
  Serious: Yes (Hospitalization)
  Sender: FDA-Public Use
  Company Number: US-ACCORD-015084

PATIENT
  Age: 53 Year
  Sex: Male

DRUGS (6)
  1. VANCOMYCIN [Concomitant]
     Indication: SEPTIC SHOCK
  2. TOPIRAMATE [Suspect]
     Indication: SEIZURE
  3. ATAZANAVIR [Concomitant]
     Indication: ACQUIRED IMMUNE DEFICIENCY SYNDROME
  4. LAMIVUDINE [Concomitant]
     Indication: ACQUIRED IMMUNE DEFICIENCY SYNDROME
  5. CEFEPIME [Concomitant]
     Indication: SEPTIC SHOCK
  6. ZIDOVUDINE [Concomitant]
     Indication: ACQUIRED IMMUNE DEFICIENCY SYNDROME

REACTIONS (3)
  - Hypokalaemia [Recovered/Resolved]
  - Respiratory failure [Unknown]
  - Metabolic acidosis [Unknown]
